FAERS Safety Report 5916222-4 (Version None)
Quarter: 2008Q4

REPORT INFORMATION
  Report Type: 
  Country: None (occurrence: None)
  Receive Date: 20081013
  Receipt Date: 20081007
  Transmission Date: 20090506
  Serious: Yes (Hospitalization, Disabling, Other)
  Sender: FDA-Public Use
  Company Number: US-ROCHE-394237

PATIENT
  Sex: Male
  Weight: 70.3 kg

DRUGS (1)
  1. ACCUTANE [Suspect]
     Dosage: HE WAS DISPENSED ACCUTANE 20 MG + 40 MG ON 12-JAN-98, 9-FEB-98, 11-MAR-98, 8-APR-98, 9-MAY-98
     Route: 048
     Dates: start: 19980113, end: 19980602

REACTIONS (19)
  - ANORECTAL DISORDER [None]
  - COLITIS [None]
  - COLITIS ULCERATIVE [None]
  - CROHN'S DISEASE [None]
  - DRY SKIN [None]
  - GASTROINTESTINAL DISORDER [None]
  - GASTROINTESTINAL HAEMORRHAGE [None]
  - INDURATION [None]
  - INFLAMMATORY BOWEL DISEASE [None]
  - INTERVERTEBRAL DISC PROTRUSION [None]
  - INTESTINAL HAEMORRHAGE [None]
  - MULTI-ORGAN DISORDER [None]
  - PERIRECTAL ABSCESS [None]
  - PROCTALGIA [None]
  - PROCTITIS [None]
  - RECTAL HAEMORRHAGE [None]
  - ROAD TRAFFIC ACCIDENT [None]
  - SPINAL COLUMN STENOSIS [None]
  - STRESS FRACTURE [None]
